FAERS Safety Report 13130657 (Version 3)
Quarter: 2017Q1

REPORT INFORMATION
  Report Type: Spontaneous
  Country: JP (occurrence: JP)
  Receive Date: 20170119
  Receipt Date: 20170221
  Transmission Date: 20170428
  Serious: Yes (Death, Life-Threatening, Other)
  Sender: FDA-Public Use
  Company Number: JP-BRISTOL-MYERS SQUIBB COMPANY-BMS-2015-015213

PATIENT
  Age: 65 Year
  Sex: Male

DRUGS (2)
  1. ERBITUX [Suspect]
     Active Substance: CETUXIMAB
     Indication: HYPOPHARYNGEAL CANCER
     Dosage: 600 MG, QWK
     Route: 042
     Dates: start: 20141114
  2. ERBITUX [Suspect]
     Active Substance: CETUXIMAB
     Dosage: 380 MG, QWK
     Route: 042
     Dates: end: 20150114

REACTIONS (3)
  - Malignant neoplasm progression [Fatal]
  - Pneumothorax [Recovering/Resolving]
  - Interstitial lung disease [Recovering/Resolving]

NARRATIVE: CASE EVENT DATE: 201510
